FAERS Safety Report 5245938-0 (Version None)
Quarter: 2007Q1

REPORT INFORMATION
  Report Type: 
  Country: None (occurrence: None)
  Receive Date: 20070221
  Receipt Date: 20070212
  Transmission Date: 20070707
  Serious: Yes (Other)
  Sender: FDA-Public Use
  Company Number: 112342ISR

PATIENT
  Age: 72 Year
  Sex: Female

DRUGS (9)
  1. FLUOROURACIL [Suspect]
     Dosage: 5886 MG (1 IN 2 WK)
     Route: 042
     Dates: start: 20060502, end: 20060822
  2. FOLINIC ACID [Suspect]
     Dosage: 785 MG (1 IN 2 WK)
     Route: 042
     Dates: start: 20060502, end: 20060822
  3. ESOMEPRAZOLE MAGNESIUM [Concomitant]
  4. BISOPROLOL [Concomitant]
  5. MEDROXYPROGESTERONE ACETATE [Concomitant]
  6. LOPERAMIDE HYDROCHLORIDE [Concomitant]
  7. ZOLEDRONIC ACID [Concomitant]
  8. NADROPARIN CALCIUM [Concomitant]
  9. ACETYLSALICYLIC ACID SRT [Concomitant]

REACTIONS (1)
  - PERIPHERAL SENSORY NEUROPATHY [None]
